FAERS Safety Report 7204949-6 (Version None)
Quarter: 2010Q4

REPORT INFORMATION
  Report Type: 
  Country: None (occurrence: None)
  Receive Date: 20101230
  Receipt Date: 20101222
  Transmission Date: 20110411
  Serious: Yes (Hospitalization)
  Sender: FDA-Public Use
  Company Number: IT-TEVA-260984ISR

PATIENT
  Sex: Female

DRUGS (1)
  1. ETOPOSIDE [Suspect]

REACTIONS (1)
  - BONE MARROW FAILURE [None]
